FAERS Safety Report 17432389 (Version 2)
Quarter: 2020Q3

REPORT INFORMATION
  Report Type: Spontaneous
  Country: US (occurrence: US)
  Receive Date: 20200218
  Receipt Date: 20200805
  Transmission Date: 20201102
  Serious: No
  Sender: FDA-Public Use
  Company Number: US-SA-2020SA036245

PATIENT

DRUGS (3)
  1. AUBAGIO [Suspect]
     Active Substance: TERIFLUNOMIDE
     Indication: MULTIPLE SCLEROSIS
     Dosage: 14 MG, QD
     Route: 048
     Dates: start: 2015
  2. AMPYRA [Concomitant]
     Active Substance: DALFAMPRIDINE
  3. DALFAMPRIDINE. [Concomitant]
     Active Substance: DALFAMPRIDINE

REACTIONS (4)
  - Depression [Unknown]
  - Gait disturbance [Unknown]
  - Decreased interest [Unknown]
  - Depressed mood [Unknown]

NARRATIVE: CASE EVENT DATE: 202007
